FAERS Safety Report 8519759-7 (Version None)
Quarter: 2012Q3

REPORT INFORMATION
  Report Type: 
  Country: None (occurrence: None)
  Receive Date: 20120719
  Receipt Date: 20120709
  Transmission Date: 20120928
  Serious: No
  Sender: FDA-Public Use
  Company Number: US-BIOGENIDEC-2012BI012867

PATIENT
  Age: 63 Year
  Sex: Male

DRUGS (1)
  1. TYSABRI [Suspect]
     Indication: MULTIPLE SCLEROSIS
     Route: 042
     Dates: start: 20120217

REACTIONS (5)
  - URINARY TRACT INFECTION [None]
  - FATIGUE [None]
  - MENTAL IMPAIRMENT [None]
  - BALANCE DISORDER [None]
  - EYE DISORDER [None]
